FAERS Safety Report 6146421-0 (Version None)
Quarter: 2009Q2

REPORT INFORMATION
  Report Type: 
  Country: None (occurrence: None)
  Receive Date: 20090403
  Receipt Date: 20090403
  Transmission Date: 20091009
  Serious: Yes (Life-Threatening, Hospitalization, Other)
  Sender: FDA-Public Use
  Company Number: None

PATIENT
  Sex: Female
  Weight: 72.5755 kg

DRUGS (6)
  1. YAZ [Suspect]
     Indication: ACNE
     Dosage: 1 PILL 1 X DAILY MOUTH
     Route: 048
     Dates: start: 20081201, end: 20090101
  2. YAZ [Suspect]
     Indication: MENSTRUATION IRREGULAR
     Dosage: 1 PILL 1 X DAILY MOUTH
     Route: 048
     Dates: start: 20081201, end: 20090101
  3. YAZ [Suspect]
     Indication: ACNE
     Dosage: 1 PILL 1 X DAILY MOUTH
     Route: 048
     Dates: start: 20090101, end: 20090201
  4. YAZ [Suspect]
     Indication: MENSTRUATION IRREGULAR
     Dosage: 1 PILL 1 X DAILY MOUTH
     Route: 048
     Dates: start: 20090101, end: 20090201
  5. COUMADIN [Concomitant]
  6. LOVENOX [Concomitant]

REACTIONS (3)
  - IMPAIRED WORK ABILITY [None]
  - PULMONARY EMBOLISM [None]
  - WHEEZING [None]
